FAERS Safety Report 7215168-1 (Version None)
Quarter: 2011Q1

REPORT INFORMATION
  Report Type: 
  Country: None (occurrence: None)
  Receive Date: 20110107
  Receipt Date: 20100928
  Transmission Date: 20110831
  Serious: No
  Sender: FDA-Public Use
  Company Number: A0883786A

PATIENT
  Age: 66 Year
  Sex: Female

DRUGS (5)
  1. TRAZODONE [Concomitant]
  2. ONE A DAY [Concomitant]
  3. LOVAZA [Suspect]
     Dosage: 4CAP PER DAY
     Route: 048
     Dates: start: 20090101
  4. AVALIDE [Concomitant]
  5. PAROXETINE [Concomitant]

REACTIONS (2)
  - SEBORRHOEA [None]
  - ABDOMINAL DISCOMFORT [None]
